FAERS Safety Report 9160132 (Version 1)
Quarter: 2013Q1

REPORT INFORMATION
  Report Type: Spontaneous
  Country: US (occurrence: US)
  Receive Date: 20130313
  Receipt Date: 20130313
  Transmission Date: 20140127
  Serious: Yes (Disabling, Other)
  Sender: FDA-Public Use
  Company Number: US-PFIZER INC-2013084534

PATIENT
  Age: 58 Year
  Sex: Male
  Weight: 82.09 kg

DRUGS (3)
  1. ZOLOFT [Suspect]
     Indication: DEPRESSION
     Dosage: 100 MG DAILY
  2. LIPITOR [Suspect]
     Indication: BLOOD CHOLESTEROL ABNORMAL
     Dosage: 40 MG DAILY
  3. OPANA [Concomitant]
     Indication: BACK DISORDER
     Dosage: 20 MG, 2X/DAY

REACTIONS (2)
  - Back disorder [Unknown]
  - Tooth disorder [Unknown]
